FAERS Safety Report 14319008 (Version 16)
Quarter: 2019Q3

REPORT INFORMATION
  Report Type: Spontaneous
  Country: LT (occurrence: LT)
  Receive Date: 20171222
  Receipt Date: 20190717
  Transmission Date: 20191004
  Serious: Yes (Death, Life-Threatening, Hospitalization, Other)
  Sender: FDA-Public Use
  Company Number: LT-JNJFOC-20171227675

PATIENT
  Age: 53 Year
  Sex: Female

DRUGS (21)
  1. ONDANSETRON [Interacting]
     Active Substance: ONDANSETRON
     Indication: PROPHYLAXIS OF NAUSEA AND VOMITING
     Route: 048
     Dates: start: 20160101, end: 20161121
  2. FOLIC ACID. [Interacting]
     Active Substance: FOLIC ACID
     Indication: PREMEDICATION
     Route: 042
     Dates: start: 20160101
  3. DEXAMETHASONE. [Interacting]
     Active Substance: DEXAMETHASONE
     Indication: PREMEDICATION
     Route: 048
     Dates: start: 20160101, end: 20161121
  4. CISPLATIN TEVA [Interacting]
     Active Substance: CISPLATIN
     Indication: PLEURAL MESOTHELIOMA
     Route: 042
     Dates: start: 2010, end: 20160101
  5. APREPITANT. [Interacting]
     Active Substance: APREPITANT
     Indication: PROPHYLAXIS
  6. MANNITOL. [Interacting]
     Active Substance: MANNITOL
     Indication: TOXICITY TO VARIOUS AGENTS
     Route: 042
     Dates: start: 20160101, end: 20161121
  7. IONSYS [Interacting]
     Active Substance: FENTANYL HYDROCHLORIDE
     Indication: PAIN MANAGEMENT
     Route: 062
     Dates: start: 20160101
  8. CISPLATIN TEVA [Interacting]
     Active Substance: CISPLATIN
     Dosage: 0.5MG/ML; 100 ML
     Route: 042
     Dates: start: 2016, end: 2016
  9. CISPLATIN. [Interacting]
     Active Substance: CISPLATIN
     Indication: PRODUCT USED FOR UNKNOWN INDICATION
     Route: 065
     Dates: start: 2015, end: 2016
  10. DEXAMETHASONE. [Interacting]
     Active Substance: DEXAMETHASONE
     Indication: DRUG INTOLERANCE
     Route: 048
     Dates: start: 2016
  11. METOPROLOL SUCCINATE. [Interacting]
     Active Substance: METOPROLOL SUCCINATE
     Indication: HYPERTENSION
     Route: 048
     Dates: start: 20160101
  12. CYANOCOBALAMIN. [Interacting]
     Active Substance: CYANOCOBALAMIN
     Indication: PREMEDICATION
     Route: 042
     Dates: start: 20160101
  13. ANGIOCELL [Interacting]
     Active Substance: SHARK CARTILAGE\SHARK, UNSPECIFIED
     Indication: PRODUCT USED FOR UNKNOWN INDICATION
     Route: 048
     Dates: start: 20160101
  14. PEMETREXED. [Interacting]
     Active Substance: PEMETREXED
     Indication: PLEURAL MESOTHELIOMA
     Route: 065
     Dates: start: 2015, end: 20160101
  15. PEMETREXED. [Interacting]
     Active Substance: PEMETREXED
     Route: 065
  16. TRAMADOL HYDROCHLORIDE. [Suspect]
     Active Substance: TRAMADOL HYDROCHLORIDE
     Indication: PAIN MANAGEMENT
     Route: 048
     Dates: start: 20160101
  17. APREPITANT. [Interacting]
     Active Substance: APREPITANT
     Indication: PROPHYLAXIS OF NAUSEA AND VOMITING
     Route: 048
     Dates: start: 20160101, end: 20161121
  18. TIANEPTINE [Interacting]
     Active Substance: TIANEPTINE
     Indication: PAIN MANAGEMENT
  19. ONDANSETRON [Interacting]
     Active Substance: ONDANSETRON
     Indication: PROPHYLAXIS
  20. ALPRAZOLAM. [Interacting]
     Active Substance: ALPRAZOLAM
     Indication: ANXIETY DISORDER
     Route: 048
     Dates: start: 20160101
  21. TIANEPTINE [Interacting]
     Active Substance: TIANEPTINE
     Indication: DEPRESSION
     Route: 048
     Dates: start: 20160101

REACTIONS (10)
  - Cardio-respiratory arrest [Fatal]
  - Cardiotoxicity [Recovered/Resolved]
  - Anaphylactic reaction [Recovered/Resolved]
  - Drug interaction [Unknown]
  - Haemodynamic instability [Recovered/Resolved]
  - Toxicity to various agents [Unknown]
  - Sudden cardiac death [Fatal]
  - Circulatory collapse [Recovered/Resolved]
  - Hypersensitivity [Recovered/Resolved]
  - Hypomagnesaemia [Unknown]

NARRATIVE: CASE EVENT DATE: 20160101
